FAERS Safety Report 8966436 (Version 3)
Quarter: 2013Q1

REPORT INFORMATION
  Report Type: Spontaneous
  Country: DE (occurrence: DE)
  Receive Date: 20121216
  Receipt Date: 20130308
  Transmission Date: 20140127
  Serious: Yes (Other)
  Sender: FDA-Public Use
  Company Number: DE-UCBSA-072984

PATIENT
  Age: 50 Year
  Sex: Female
  Weight: 89 kg

DRUGS (4)
  1. LEGANTO-NEUPRO [Suspect]
     Indication: RESTLESS LEGS SYNDROME
     Dosage: 2 MG /24H
     Route: 062
     Dates: start: 20121029, end: 20121202
  2. SIFROL [Concomitant]
     Indication: RESTLESS LEGS SYNDROME
     Dosage: DOSE : 0.7 MG
  3. VENLAFAXIN [Concomitant]
     Indication: CYCLOTHYMIC DISORDER
     Route: 048
     Dates: start: 1998
  4. L-THYROXIN [Concomitant]

REACTIONS (8)
  - Depression [Recovered/Resolved]
  - Hyperhidrosis [Recovered/Resolved]
  - Sleep disorder [Recovered/Resolved]
  - Palpitations [Unknown]
  - Dry mouth [Unknown]
  - Restlessness [Recovered/Resolved]
  - Drug ineffective [Recovered/Resolved]
  - Product quality issue [Recovered/Resolved]
